FAERS Safety Report 7220544-7 (Version None)
Quarter: 2011Q1

REPORT INFORMATION
  Report Type: 
  Country: None (occurrence: None)
  Receive Date: 20110111
  Receipt Date: 20110104
  Transmission Date: 20110831
  Serious: Yes (Hospitalization)
  Sender: FDA-Public Use
  Company Number: FR-PFIZER INC-2011005847

PATIENT
  Age: 79 Year
  Sex: Male

DRUGS (11)
  1. KARDEGIC [Concomitant]
     Dosage: 75 MG, UNK
     Route: 048
     Dates: start: 20090902
  2. FORLAX [Concomitant]
  3. PLAVIX [Concomitant]
     Dosage: 1 DF, UNK
     Route: 048
     Dates: start: 20090902
  4. XATRAL [Concomitant]
     Indication: PROSTATIC ADENOMA
     Dosage: 10 MG, UNK
     Route: 048
     Dates: start: 20090817
  5. VASTEN [Concomitant]
     Dosage: 1 DF, UNK
     Route: 048
     Dates: start: 20090902
  6. TEMESTA [Concomitant]
     Indication: ANXIETY
     Dosage: 1 DF, UNK
     Route: 048
     Dates: start: 20101013
  7. FONZYLANE [Concomitant]
     Dosage: 1 DF, 2X/DAY
     Route: 048
     Dates: start: 20090902
  8. MEMANTINE [Concomitant]
     Indication: DEMENTIA ALZHEIMER'S TYPE
     Dosage: 1 DF, UNK
     Route: 048
  9. ATARAX [Suspect]
     Indication: ANXIETY
     Dosage: 1 DF, DAILY
     Route: 048
     Dates: start: 20101013, end: 20101123
  10. PERINDOPRIL ERBUMINE [Concomitant]
     Indication: HYPERTENSION
     Dosage: 1 DF, UNK
     Route: 048
     Dates: start: 20091222
  11. PARACETAMOL [Concomitant]

REACTIONS (10)
  - POLYURIA [None]
  - EROSIVE OESOPHAGITIS [None]
  - VOMITING [None]
  - DYSURIA [None]
  - HAEMATEMESIS [None]
  - GASTROINTESTINAL DISORDER [None]
  - PROSTATE TENDERNESS [None]
  - EXPRESSIVE LANGUAGE DISORDER [None]
  - ABNORMAL BEHAVIOUR [None]
  - GASTRITIS EROSIVE [None]
